FAERS Safety Report 24731218 (Version 1)
Quarter: 2024Q4

REPORT INFORMATION
  Report Type: Spontaneous
  Country: NL (occurrence: NL)
  Receive Date: 20241213
  Receipt Date: 20241213
  Transmission Date: 20250115
  Serious: Yes (Hospitalization)
  Sender: RANBAXY
  Company Number: NL-SUN PHARMACEUTICAL INDUSTRIES LTD-2024RR-484064

PATIENT
  Age: 69 Year
  Sex: Female
  Weight: 93 kg

DRUGS (1)
  1. OLANZAPINE [Suspect]
     Active Substance: OLANZAPINE
     Indication: Restlessness
     Dosage: 1 DOSAGE FORM, DAILY
     Route: 048
     Dates: start: 20231201

REACTIONS (2)
  - Pulmonary embolism [Recovering/Resolving]
  - Syncope [Recovering/Resolving]
